FAERS Safety Report 6993900-X (Version None)
Quarter: 2010Q3

REPORT INFORMATION
  Report Type: 
  Country: None (occurrence: None)
  Receive Date: 20100917
  Receipt Date: 20100623
  Transmission Date: 20110219
  Serious: No
  Sender: FDA-Public Use
  Company Number: US-ASTRAZENECA-2010SE27622

PATIENT
  Age: 47 Year
  Sex: Female
  Weight: 76.2 kg

DRUGS (7)
  1. SEROQUEL [Suspect]
     Indication: BIPOLAR DISORDER
     Route: 048
     Dates: start: 20100101
  2. ZOMIG [Suspect]
     Indication: HEADACHE
     Route: 048
     Dates: start: 19900101
  3. PERCOCET [Concomitant]
     Indication: PAIN
     Dosage: 10/135 Q4-6H
  4. OXYCONTIN [Concomitant]
     Indication: PAIN
  5. SOMA [Concomitant]
     Indication: PAIN
  6. VALIUM [Concomitant]
     Indication: ANXIETY
  7. TENS UNIT [Concomitant]
     Indication: PAIN

REACTIONS (5)
  - CRYING [None]
  - DRUG INEFFECTIVE [None]
  - HEART RATE INCREASED [None]
  - MOUTH ULCERATION [None]
  - STRESS [None]
